FAERS Safety Report 22618949 (Version 2)
Quarter: 2024Q1

REPORT INFORMATION
  Report Type: Report from Study
  Country: US (occurrence: US)
  Receive Date: 20230620
  Receipt Date: 20240322
  Transmission Date: 20240409
  Serious: Yes (Other)
  Sender: FDA-Public Use
  Company Number: US-ABBVIE-5292314

PATIENT
  Sex: Male

DRUGS (2)
  1. IMBRUVICA [Suspect]
     Active Substance: IBRUTINIB
     Indication: Chronic lymphocytic leukaemia
     Route: 048
     Dates: start: 20201010
  2. IMBRUVICA [Suspect]
     Active Substance: IBRUTINIB
     Indication: Chronic lymphocytic leukaemia
     Route: 048

REACTIONS (13)
  - Myocardial ischaemia [Unknown]
  - Full blood count abnormal [Unknown]
  - Platelet count decreased [Unknown]
  - Impaired healing [Unknown]
  - Tooth extraction [Unknown]
  - Haemorrhage [Unknown]
  - Supraventricular extrasystoles [Unknown]
  - Ventricular extrasystoles [Unknown]
  - Coronary artery occlusion [Unknown]
  - Lymphocyte count decreased [Unknown]
  - Blood immunoglobulin M increased [Unknown]
  - Monoclonal immunoglobulin present [Unknown]
  - Benign prostatic hyperplasia [Unknown]
